FAERS Safety Report 24760072 (Version 1)
Quarter: 2024Q4

REPORT INFORMATION
  Report Type: Other
  Country: IR (occurrence: IR)
  Receive Date: 20241220
  Receipt Date: 20241220
  Transmission Date: 20250115
  Serious: Yes (Other)
  Sender: B BRAUN
  Company Number: IR-B.Braun Medical Inc.-2167504

PATIENT
  Age: 4 Year
  Sex: Male

DRUGS (7)
  1. ACETAMINOPHEN [Suspect]
     Active Substance: ACETAMINOPHEN
     Indication: Varicella
  2. ACYCLOVIR [Suspect]
     Active Substance: ACYCLOVIR
  3. RIFAMPIN [Concomitant]
     Active Substance: RIFAMPIN
  4. CLINDAMYCIN [Concomitant]
     Active Substance: CLINDAMYCIN
  5. LINEZOLID [Concomitant]
     Active Substance: LINEZOLID
  6. MEROPENEM [Concomitant]
     Active Substance: MEROPENEM
  7. DICLOFENAC [Suspect]
     Active Substance: DICLOFENAC

REACTIONS (1)
  - Drug ineffective [Unknown]
